FAERS Safety Report 6387625-1 (Version None)
Quarter: 2009Q3

REPORT INFORMATION
  Report Type: 
  Country: None (occurrence: None)
  Receive Date: 20090930
  Receipt Date: 20090917
  Transmission Date: 20100115
  Serious: Yes (Hospitalization, Other)
  Sender: FDA-Public Use
  Company Number: A-US2009-27300

PATIENT
  Age: 76 Year
  Sex: Female

DRUGS (6)
  1. TRACLEER [Suspect]
     Indication: PULMONARY ARTERIAL HYPERTENSION
     Dosage: 62.5 MG, BID, ORAL
     Route: 048
     Dates: start: 20090713, end: 20090819
  2. COUMADIN [Concomitant]
  3. XANAX [Concomitant]
  4. M.V.I. (TOCOPHEROL  ASCORBIC ACID RETINOL  RIBOFLAVIN  NICOTINAMIDE DE [Concomitant]
  5. ZEGERID (OMEPRAZOLE) [Concomitant]
  6. SPIRONOLACTONE [Concomitant]

REACTIONS (5)
  - ASPARTATE AMINOTRANSFERASE INCREASED [None]
  - CARDIAC FAILURE [None]
  - DYSPNOEA [None]
  - LIVER FUNCTION TEST ABNORMAL [None]
  - PULMONARY OEDEMA [None]
